FAERS Safety Report 5654757-2 (Version None)
Quarter: 2008Q1

REPORT INFORMATION
  Report Type: 
  Country: None (occurrence: None)
  Receive Date: 20080219
  Receipt Date: 20080219
  Transmission Date: 20080703
  Serious: No
  Sender: FDA-Public Use
  Company Number: WAES 0710USA03938

PATIENT
  Age: 40 Year
  Sex: Female

DRUGS (9)
  1. JANUVIA [Suspect]
     Indication: DIABETES MELLITUS
     Dosage: 10 MG/DAILY/PO
     Route: 048
     Dates: start: 20070928, end: 20071001
  2. ABILIFY [Concomitant]
  3. DEPAKOTE [Concomitant]
  4. VYTORIN [Concomitant]
  5. ZOLOFT [Concomitant]
  6. [THERAPY UNSPECIFIED] [Concomitant]
  7. CLONAZEPAM [Concomitant]
  8. LEVOTHYROXINE SODIUM [Concomitant]
  9. METFORMIN [Concomitant]

REACTIONS (1)
  - ARTHRALGIA [None]
